FAERS Safety Report 20746331 (Version 1)
Quarter: 2022Q2

REPORT INFORMATION
  Report Type: Spontaneous
  Country: US (occurrence: US)
  Receive Date: 20220425
  Receipt Date: 20220425
  Transmission Date: 20220721
  Serious: Yes (Other)
  Sender: FDA-Public Use
  Company Number: US-PFIZER INC-202200580228

PATIENT
  Age: 68 Year
  Sex: Female
  Weight: 71.67 kg

DRUGS (3)
  1. XELJANZ XR [Suspect]
     Active Substance: TOFACITINIB CITRATE
     Indication: Psoriatic arthropathy
     Dosage: 11 MG, 1X/DAY
  2. XELJANZ XR [Suspect]
     Active Substance: TOFACITINIB CITRATE
     Indication: Rheumatoid arthritis
  3. XELJANZ XR [Suspect]
     Active Substance: TOFACITINIB CITRATE
     Indication: Diverticulitis

REACTIONS (4)
  - Colitis ulcerative [Unknown]
  - Diverticulitis [Unknown]
  - Skin disorder [Not Recovered/Not Resolved]
  - Face injury [Not Recovered/Not Resolved]
